FAERS Safety Report 25860008 (Version 2)
Quarter: 2025Q4

REPORT INFORMATION
  Report Type: Spontaneous
  Country: EU (occurrence: EU)
  Receive Date: 20250929
  Receipt Date: 20251002
  Transmission Date: 20260119
  Serious: No
  Sender: ALEXION PHARMACEUTICALS
  Company Number: EU-AstraZeneca-CH-00958391A

PATIENT
  Age: 56 Year
  Sex: Female
  Weight: 77.5 kg

DRUGS (1)
  1. XIGDUO XR [Suspect]
     Active Substance: DAPAGLIFLOZIN PROPANEDIOL\METFORMIN HYDROCHLORIDE
     Indication: Diabetes mellitus
     Dosage: 5 MILLIGRAM, BID
     Dates: start: 202301, end: 202508

REACTIONS (4)
  - Blood creatinine abnormal [Unknown]
  - Blood glucose fluctuation [Unknown]
  - Blood pressure fluctuation [Unknown]
  - Urine albumin/creatinine ratio abnormal [Unknown]

NARRATIVE: CASE EVENT DATE: 20230101
